FAERS Safety Report 7222064-2 (Version None)
Quarter: 2011Q1

REPORT INFORMATION
  Report Type: 
  Country: None (occurrence: None)
  Receive Date: 20110112
  Receipt Date: 20110104
  Transmission Date: 20110831
  Serious: Yes (Hospitalization)
  Sender: FDA-Public Use
  Company Number: IT-JNJFOC-20110101259

PATIENT
  Sex: Male

DRUGS (2)
  1. REOPRO [Suspect]
     Indication: ILL-DEFINED DISORDER
     Route: 042
  2. REOPRO [Suspect]
     Route: 042

REACTIONS (3)
  - THROMBOCYTOPENIA [None]
  - LEUKOPENIA [None]
  - HAEMOGLOBIN DECREASED [None]
